FAERS Safety Report 11555569 (Version 1)
Quarter: 2015Q3

REPORT INFORMATION
  Report Type: Spontaneous
  Country: US (occurrence: US)
  Receive Date: 20150903
  Receipt Date: 20150903
  Transmission Date: 20151125
  Serious: No
  Sender: FDA-Public Use
  Company Number: US-ELI_LILLY_AND_COMPANY-US201011002014

PATIENT
  Sex: Female

DRUGS (7)
  1. HUMALOG [Suspect]
     Active Substance: INSULIN LISPRO
     Dosage: 37 U, 3/D
     Dates: start: 2008
  2. LANTUS [Concomitant]
     Active Substance: INSULIN GLARGINE
  3. HUMALOG [Suspect]
     Active Substance: INSULIN LISPRO
     Dosage: 37 U, 3/D
     Dates: start: 2008
  4. HUMALOG [Suspect]
     Active Substance: INSULIN LISPRO
     Indication: TYPE 2 DIABETES MELLITUS
     Dosage: 37 U, 3/D
     Dates: start: 2008
  5. HUMALOG [Suspect]
     Active Substance: INSULIN LISPRO
     Dosage: 37 U, 3/D
     Dates: start: 2008
  6. HUMALOG [Suspect]
     Active Substance: INSULIN LISPRO
     Dosage: 37 U, 3/D
     Dates: start: 2008
  7. HUMALOG [Suspect]
     Active Substance: INSULIN LISPRO
     Dosage: 37 U, 3/D
     Dates: start: 2008

REACTIONS (2)
  - Underdose [Unknown]
  - Cardiac disorder [Unknown]
